FAERS Safety Report 5684611-1 (Version None)
Quarter: 2008Q1

REPORT INFORMATION
  Report Type: 
  Country: None (occurrence: None)
  Receive Date: 20080328
  Receipt Date: 20070406
  Transmission Date: 20080703
  Serious: Yes (Other)
  Sender: FDA-Public Use
  Company Number: US-BRISTOL-MYERS SQUIBB COMPANY-13741913

PATIENT
  Age: 52 Year
  Sex: Male
  Weight: 105 kg

DRUGS (6)
  1. ERBITUX [Suspect]
     Indication: COLON CANCER
     Route: 042
     Dates: start: 20061103
  2. IRINOTECAN HCL [Concomitant]
     Indication: COLON CANCER
  3. BENADRYL [Concomitant]
     Indication: PREMEDICATION
     Route: 042
  4. DEXAMETHASONE TAB [Concomitant]
     Indication: PREMEDICATION
     Route: 042
  5. ALOXI [Concomitant]
     Indication: PREMEDICATION
  6. ATROPINE [Concomitant]
     Indication: PREMEDICATION

REACTIONS (1)
  - ARTHRALGIA [None]
